FAERS Safety Report 8084342-7 (Version None)
Quarter: 2012Q1

REPORT INFORMATION
  Report Type: 
  Country: None (occurrence: None)
  Receive Date: 20120128
  Receipt Date: 20110129
  Transmission Date: 20120608
  Serious: No
  Sender: FDA-Public Use
  Company Number: US-ABBOTT-11P-163-0701566-00

PATIENT
  Age: 32 Year
  Sex: Male

DRUGS (5)
  1. PREDNISONE TAB [Concomitant]
     Indication: PRODUCT USED FOR UNKNOWN INDICATION
  2. HUMIRA [Suspect]
     Indication: CROHN'S DISEASE
     Dates: start: 20110115, end: 20110115
  3. HUMIRA [Suspect]
     Dosage: 80MG LOADING DOSE
  4. HUMIRA [Suspect]
  5. MERCAPTOPURINE [Concomitant]
     Indication: CROHN'S DISEASE
     Route: 048

REACTIONS (3)
  - RESPIRATORY TRACT CONGESTION [None]
  - MALAISE [None]
  - FEELING ABNORMAL [None]
